FAERS Safety Report 8125337-4 (Version None)
Quarter: 2012Q1

REPORT INFORMATION
  Report Type: 
  Country: None (occurrence: None)
  Receive Date: 20120209
  Receipt Date: 20120206
  Transmission Date: 20120608
  Serious: Yes (Congenital Anomaly)
  Sender: FDA-Public Use
  Company Number: US-GLAXOSMITHKLINE-A0963956A

PATIENT

DRUGS (5)
  1. ALBUTEROL [Concomitant]
     Route: 064
  2. MULTI-VITAMINS [Concomitant]
     Route: 064
  3. PAXIL [Suspect]
     Indication: DEPRESSION
     Dosage: 20MG PER DAY
     Route: 064
     Dates: start: 20040106
  4. ULTRAM [Concomitant]
  5. LORTAB [Concomitant]

REACTIONS (4)
  - OTORRHOEA [None]
  - CLEFT PALATE [None]
  - CONGENITAL TONGUE ANOMALY [None]
  - FOETAL EXPOSURE DURING PREGNANCY [None]
